FAERS Safety Report 13556359 (Version 1)
Quarter: 2017Q2

REPORT INFORMATION
  Report Type: Spontaneous
  Country: US (occurrence: US)
  Receive Date: 20170517
  Receipt Date: 20170517
  Transmission Date: 20170830
  Serious: No
  Sender: FDA-Public Use
  Company Number: US-SA-2017SA028876

PATIENT
  Sex: Female

DRUGS (5)
  1. SOLOSTAR [Concomitant]
     Active Substance: DEVICE
  2. SOLOSTAR [Concomitant]
     Active Substance: DEVICE
     Route: 065
  3. LANTUS SOLOSTAR [Concomitant]
     Active Substance: INSULIN GLARGINE
  4. NOVOLOG [Concomitant]
     Active Substance: INSULIN ASPART
     Route: 065
  5. TOUJEO [Suspect]
     Active Substance: INSULIN GLARGINE
     Indication: DIABETES MELLITUS
     Route: 065

REACTIONS (1)
  - Incorrect product storage [Unknown]
